FAERS Safety Report 24687366 (Version 3)
Quarter: 2025Q1

REPORT INFORMATION
  Report Type: Spontaneous
  Country: AR (occurrence: AR)
  Receive Date: 20241202
  Receipt Date: 20250131
  Transmission Date: 20250408
  Serious: No
  Sender: PFIZER
  Company Number: AR-PFIZER INC-202400309895

PATIENT
  Age: 8 Year
  Sex: Male

DRUGS (1)
  1. GENOTROPIN [Suspect]
     Active Substance: SOMATROPIN
     Indication: Chronic kidney disease
     Dosage: 1 MG, DAILY (7 TIMES PER WEEK)
     Dates: start: 20240515

REACTIONS (2)
  - Liver function test abnormal [Unknown]
  - Device mechanical issue [Unknown]
